FAERS Safety Report 7639090-1 (Version None)
Quarter: 2011Q3

REPORT INFORMATION
  Report Type: 
  Country: None (occurrence: None)
  Receive Date: 20110727
  Receipt Date: 20110719
  Transmission Date: 20111222
  Serious: Yes (Hospitalization, Other)
  Sender: FDA-Public Use
  Company Number: PHHY2011JP54498

PATIENT
  Age: 24 Year
  Sex: Male
  Weight: 59 kg

DRUGS (17)
  1. VOLTAREN [Suspect]
     Indication: PYREXIA
     Dosage: UNK UKN, AS NECESSARY
     Route: 048
     Dates: start: 20110614, end: 20110614
  2. ASVERIN [Concomitant]
     Dosage: 60 MG, UNK
     Route: 048
     Dates: start: 20110613, end: 20110614
  3. MUCODYNE [Concomitant]
     Dosage: 1500 MG, UNK
     Route: 048
     Dates: start: 20110613, end: 20110614
  4. TRANSAMIN [Concomitant]
     Dosage: 750 MG, UNK
     Route: 048
     Dates: start: 20110613, end: 20110614
  5. ABILIFY [Concomitant]
     Dosage: UNK UKN, UNK
     Route: 048
  6. PRIMPERAN TAB [Concomitant]
     Dosage: UNK UKN, UNK
  7. REFLEX [Concomitant]
     Dosage: UNK UKN, UNK
     Route: 048
  8. ZYPREXA [Concomitant]
     Dosage: UNK UKN, UNK
     Route: 048
  9. RISPERDAL [Concomitant]
     Dosage: UNK UKN, UNK
     Route: 048
  10. GOODMIN [Concomitant]
     Dosage: UNK UKN, UNK
     Route: 048
  11. EURODIN [Concomitant]
     Dosage: UNK UKN, UNK
     Route: 048
  12. LOPERAMIDE HCL [Concomitant]
     Dosage: UNK UKN, UNK
     Route: 048
  13. ALPRAZOLAM [Concomitant]
     Dosage: UNK UKN, UNK
  14. MEIACT [Concomitant]
     Dosage: 300 MG, UNK
     Route: 048
     Dates: start: 20110613, end: 20110614
  15. ARTANE [Concomitant]
     Dosage: UNK UKN, UNK
     Route: 048
  16. BLONANSERIN [Concomitant]
     Dosage: UNK UKN, UNK
     Route: 048
  17. FLUNITRAZEPAM [Concomitant]
     Dosage: UNK UKN, UNK

REACTIONS (4)
  - CONDITION AGGRAVATED [None]
  - ALTERED STATE OF CONSCIOUSNESS [None]
  - ENCEPHALOPATHY [None]
  - RESTLESSNESS [None]
